FAERS Safety Report 6074479-6 (Version None)
Quarter: 2009Q1

REPORT INFORMATION
  Report Type: 
  Country: None (occurrence: None)
  Receive Date: 20090206
  Receipt Date: 20090128
  Transmission Date: 20090719
  Serious: Yes (Hospitalization)
  Sender: FDA-Public Use
  Company Number: 2008-04270

PATIENT
  Age: 50 Year
  Sex: Female

DRUGS (1)
  1. VELCADE [Suspect]
     Indication: RENAL AMYLOIDOSIS
     Dosage: 1.8 MG, INTRAVENOUS
     Route: 042
     Dates: start: 20080212, end: 20081024

REACTIONS (4)
  - HYPONATRAEMIC SYNDROME [None]
  - MUSCLE SPASMS [None]
  - MYALGIA [None]
  - RENAL FAILURE [None]
